FAERS Safety Report 19056493 (Version 1)
Quarter: 2021Q1

REPORT INFORMATION
  Report Type: Spontaneous
  Country: US (occurrence: US)
  Receive Date: 20210325
  Receipt Date: 20210325
  Transmission Date: 20210420
  Serious: No
  Sender: FDA-Public Use
  Company Number: US-ASTRAZENECA-2021A136001

PATIENT

DRUGS (1)
  1. FARXIGA [Suspect]
     Active Substance: DAPAGLIFLOZIN PROPANEDIOL
     Dosage: UNKNOWN
     Route: 048

REACTIONS (6)
  - Pain [Unknown]
  - Haemorrhage [Unknown]
  - Urinary incontinence [Unknown]
  - Thirst [Unknown]
  - Fungal infection [Unknown]
  - Pollakiuria [Unknown]
